FAERS Safety Report 12491983 (Version 1)
Quarter: 2016Q2

REPORT INFORMATION
  Report Type: Spontaneous
  Country: US (occurrence: None)
  Receive Date: 20160622
  Receipt Date: 20160622
  Transmission Date: 20160815
  Serious: No
  Sender: FDA-Public Use
  Company Number: None

PATIENT
  Age: 85 Year
  Sex: Female
  Weight: 79.38 kg

DRUGS (3)
  1. SOTALOL. [Concomitant]
     Active Substance: SOTALOL
  2. EYLEA [Suspect]
     Active Substance: AFLIBERCEPT
     Indication: MACULAR DEGENERATION
     Dosage: DROPS INTO LEFT EYE...
     Dates: start: 201512
  3. ELIQUIS [Concomitant]
     Active Substance: APIXABAN

REACTIONS (1)
  - Injection site pain [None]

NARRATIVE: CASE EVENT DATE: 20160321
